FAERS Safety Report 5876263-2 (Version None)
Quarter: 2008Q3

REPORT INFORMATION
  Report Type: 
  Country: None (occurrence: None)
  Receive Date: 20080910
  Receipt Date: 20080903
  Transmission Date: 20090109
  Serious: Yes (Hospitalization, Other)
  Sender: FDA-Public Use
  Company Number: US-AMGEN-QUU305660

PATIENT
  Sex: Female

DRUGS (2)
  1. ENBREL [Suspect]
     Indication: RHEUMATOID ARTHRITIS
     Route: 058
     Dates: start: 20001001
  2. METHOTREXATE [Concomitant]
     Route: 048
     Dates: start: 20001001

REACTIONS (7)
  - CARDIAC FAILURE [None]
  - HEART RATE DECREASED [None]
  - HYPOTENSION [None]
  - INSOMNIA [None]
  - JOINT STIFFNESS [None]
  - MUSCULOSKELETAL DISCOMFORT [None]
  - MUSCULOSKELETAL STIFFNESS [None]
